FAERS Safety Report 11717628 (Version 1)
Quarter: 2015Q4

REPORT INFORMATION
  Report Type: Spontaneous
  Country: US (occurrence: US)
  Receive Date: 20151110
  Receipt Date: 20151110
  Transmission Date: 20160304
  Serious: Yes (Other)
  Sender: FDA-Public Use
  Company Number: US-ACCORD-035326

PATIENT
  Sex: Female

DRUGS (3)
  1. PACLITAXEL/PACLITAXEL LIPOSOME [Suspect]
     Active Substance: PACLITAXEL
     Indication: BREAST CANCER METASTATIC
     Dosage: RECEIVED WEEKLY PACLITAXEL 80 MG/M2 EVERY 3-4 WEEKS FROM JUN-2012 TO MAY-2013
  2. LETROZOLE. [Suspect]
     Active Substance: LETROZOLE
     Indication: BREAST CANCER METASTATIC
  3. ERIBULIN [Concomitant]
     Active Substance: ERIBULIN
     Indication: BREAST CANCER METASTATIC
     Dosage: DAYS 1 + 8 OF A 21 DAYS CYCLE
     Route: 042

REACTIONS (6)
  - Alanine aminotransferase increased [Not Recovered/Not Resolved]
  - Cachexia [Unknown]
  - Anaemia [Not Recovered/Not Resolved]
  - Performance status decreased [Recovered/Resolved]
  - Aspartate aminotransferase increased [Not Recovered/Not Resolved]
  - Alopecia [Not Recovered/Not Resolved]

NARRATIVE: CASE EVENT DATE: 201307
